FAERS Safety Report 5606435-3 (Version None)
Quarter: 2008Q1

REPORT INFORMATION
  Report Type: 
  Country: None (occurrence: None)
  Receive Date: 20080129
  Receipt Date: 20071031
  Transmission Date: 20080703
  Serious: No
  Sender: FDA-Public Use
  Company Number: A0691780A

PATIENT
  Sex: Female

DRUGS (2)
  1. WELLBUTRIN [Suspect]
     Indication: DRUG USE FOR UNKNOWN INDICATION
     Dosage: 300MG UNKNOWN
     Route: 048
  2. VALIUM [Suspect]
     Indication: MUSCLE DISORDER
     Route: 065

REACTIONS (4)
  - AMNESIA [None]
  - CONFUSIONAL STATE [None]
  - MENTAL STATUS CHANGES [None]
  - NONSPECIFIC REACTION [None]
